FAERS Safety Report 6489089-6 (Version None)
Quarter: 2009Q4

REPORT INFORMATION
  Report Type: 
  Country: None (occurrence: None)
  Receive Date: 20091210
  Receipt Date: 20091204
  Transmission Date: 20100525
  Serious: Yes (Life-Threatening, Hospitalization, Other)
  Sender: FDA-Public Use
  Company Number: CN-ELI_LILLY_AND_COMPANY-CN200912001367

PATIENT
  Sex: Female
  Weight: 49 kg

DRUGS (3)
  1. GEMZAR [Suspect]
     Indication: NON-SMALL CELL LUNG CANCER STAGE IV
     Dosage: 1.4 G, DAY 1 OF A 4 WEEKLY REGIMEN
     Route: 042
     Dates: start: 20090519
  2. GEMZAR [Suspect]
     Dosage: 1.2 G, DAY 8 OF A 4 WEEKLY REGIMEN
     Route: 042
     Dates: start: 20090519, end: 20090907
  3. PARAPLATIN [Concomitant]
     Indication: NON-SMALL CELL LUNG CANCER STAGE IV
     Dosage: AUC 5, DAY 1 OF A 4 WEEKLY REGIMEN
     Route: 042
     Dates: start: 20090519, end: 20090831

REACTIONS (4)
  - BONE MARROW FAILURE [None]
  - ECCHYMOSIS [None]
  - EYE HAEMORRHAGE [None]
  - PLATELET COUNT DECREASED [None]
